FAERS Safety Report 6669300-9 (Version None)
Quarter: 2010Q2

REPORT INFORMATION
  Report Type: 
  Country: None (occurrence: None)
  Receive Date: 20100406
  Receipt Date: 20100323
  Transmission Date: 20101027
  Serious: No
  Sender: FDA-Public Use
  Company Number: US-BAYER-201017423NA

PATIENT

DRUGS (1)
  1. EOVIST [Suspect]
     Route: 042
     Dates: start: 20100323, end: 20100323

REACTIONS (1)
  - CHEST PAIN [None]
